FAERS Safety Report 10192531 (Version 2)
Quarter: 2014Q2

REPORT INFORMATION
  Report Type: Report from Study
  Country: AR (occurrence: AR)
  Receive Date: 20140523
  Receipt Date: 20140523
  Transmission Date: 20141212
  Serious: Yes (Other)
  Sender: FDA-Public Use
  Company Number: AR-ABBVIE-14P-007-1223625-00

PATIENT
  Age: 74 Year
  Sex: Female

DRUGS (1)
  1. HUMIRA [Suspect]
     Indication: RHEUMATOID ARTHRITIS
     Dates: start: 20140212, end: 20140314

REACTIONS (4)
  - Diplegia [Not Recovered/Not Resolved]
  - Mobility decreased [Unknown]
  - Decreased immune responsiveness [Not Recovered/Not Resolved]
  - Herpes simplex [Not Recovered/Not Resolved]
